FAERS Safety Report 7993517-4 (Version None)
Quarter: 2011Q4

REPORT INFORMATION
  Report Type: 
  Country: None (occurrence: None)
  Receive Date: 20111219
  Receipt Date: 20110317
  Transmission Date: 20120403
  Serious: No
  Sender: FDA-Public Use
  Company Number: US-ASTRAZENECA-2011SE15261

PATIENT
  Age: 86 Year
  Sex: Female

DRUGS (3)
  1. SEROQUEL [Suspect]
     Route: 048
  2. SEROQUEL [Suspect]
     Indication: SLEEP DISORDER
     Route: 048
     Dates: start: 20010101
  3. CRESTOR [Suspect]
     Indication: BLOOD CHOLESTEROL INCREASED
     Route: 048
     Dates: start: 20030101

REACTIONS (8)
  - NO ADVERSE EVENT [None]
  - FALL [None]
  - MACULAR DEGENERATION [None]
  - SOMNOLENCE [None]
  - OFF LABEL USE [None]
  - EYE HAEMORRHAGE [None]
  - THERAPEUTIC RESPONSE UNEXPECTED [None]
  - COMPRESSION FRACTURE [None]
